FAERS Safety Report 18409436 (Version 2)
Quarter: 2021Q2

REPORT INFORMATION
  Report Type: Spontaneous
  Country: US (occurrence: US)
  Receive Date: 20201021
  Receipt Date: 20210426
  Transmission Date: 20210717
  Serious: No
  Sender: FDA-Public Use
  Company Number: US-ELI_LILLY_AND_COMPANY-US202010008801

PATIENT
  Sex: Female

DRUGS (5)
  1. TRULICITY [Suspect]
     Active Substance: DULAGLUTIDE
     Dosage: 0.75 MG, UNKNOWN
     Route: 058
  2. GLIPIZIDE. [Concomitant]
     Active Substance: GLIPIZIDE
     Indication: DIABETES MELLITUS
  3. TRULICITY [Suspect]
     Active Substance: DULAGLUTIDE
     Indication: TYPE 2 DIABETES MELLITUS
     Dosage: 0.75 MG, UNKNOWN
     Route: 058
     Dates: start: 202008
  4. TYLENOL [Suspect]
     Active Substance: ACETAMINOPHEN
     Indication: BACK PAIN
     Dosage: UNK UNK, UNKNOWN
     Route: 065
  5. FARXIGA [Suspect]
     Active Substance: DAPAGLIFLOZIN PROPANEDIOL
     Indication: BACK PAIN
     Dosage: UNK UNK, UNKNOWN
     Route: 065

REACTIONS (21)
  - Skin fissures [Unknown]
  - Influenza like illness [Unknown]
  - Necrotising ulcerative gingivostomatitis [Unknown]
  - Diarrhoea [Recovering/Resolving]
  - Gastrointestinal disorder [Unknown]
  - Oral candidiasis [Recovered/Resolved]
  - Abdominal tenderness [Unknown]
  - Dysgeusia [Unknown]
  - Mouth ulceration [Not Recovered/Not Resolved]
  - Hepatic enzyme increased [Unknown]
  - Stomatitis [Not Recovered/Not Resolved]
  - Blood iron abnormal [Unknown]
  - Abdominal pain upper [Recovering/Resolving]
  - Abdominal discomfort [Unknown]
  - Plicated tongue [Not Recovered/Not Resolved]
  - Eructation [Unknown]
  - Irritable bowel syndrome [Unknown]
  - Taste disorder [Not Recovered/Not Resolved]
  - Feeding disorder [Unknown]
  - Feeling abnormal [Unknown]
  - Nausea [Unknown]
